FAERS Safety Report 15868131 (Version 1)
Quarter: 2019Q1

REPORT INFORMATION
  Report Type: Report from Study
  Country: GB (occurrence: GB)
  Receive Date: 20190125
  Receipt Date: 20190125
  Transmission Date: 20190417
  Serious: Yes (Death)
  Sender: FDA-Public Use
  Company Number: GB-PFIZER INC-2019035423

PATIENT
  Sex: Male

DRUGS (4)
  1. GAMMA HYDROXYBUTYRATE [Interacting]
     Active Substance: 4-HYDROXYBUTANOIC ACID
  2. AMPHETAMINE [Interacting]
     Active Substance: AMPHETAMINE
  3. KETAMINE HCL [Suspect]
     Active Substance: KETAMINE HYDROCHLORIDE
  4. METHYLAMPHETAMINE [Interacting]
     Active Substance: METHAMPHETAMINE

REACTIONS (2)
  - Drug interaction [Fatal]
  - Toxicity to various agents [Fatal]
